FAERS Safety Report 17920653 (Version 1)
Quarter: 2020Q2

REPORT INFORMATION
  Report Type: Report from Study
  Country: None (occurrence: PR)
  Receive Date: 20200621
  Receipt Date: 20200621
  Transmission Date: 20200714
  Serious: Yes (Other)
  Sender: FDA-Public Use
  Company Number: PR-ABBVIE-20K-131-3450089-00

PATIENT
  Sex: Female
  Weight: 88.98 kg

DRUGS (2)
  1. HUMIRA [Suspect]
     Active Substance: ADALIMUMAB
     Indication: UVEITIS
     Dosage: 40MG/0.8ML
     Route: 058
     Dates: start: 20121108
  2. HUMIRA [Suspect]
     Active Substance: ADALIMUMAB
     Indication: UVEITIS
     Route: 058

REACTIONS (1)
  - Maculopathy [Not Recovered/Not Resolved]
